FAERS Safety Report 9137542 (Version 2)
Quarter: 2013Q1

REPORT INFORMATION
  Report Type: Spontaneous
  Country: US (occurrence: US)
  Receive Date: 20130304
  Receipt Date: 20130311
  Transmission Date: 20140127
  Serious: No
  Sender: FDA-Public Use
  Company Number: PHEH2013US005136

PATIENT
  Sex: Female

DRUGS (5)
  1. RECLAST [Suspect]
     Indication: OSTEOPENIA
     Dosage: UNK UKN, UNK
     Route: 042
     Dates: start: 20120416
  2. B12-VITAMIN [Concomitant]
  3. CALCIUM [Concomitant]
  4. VITAMIN D [Concomitant]
  5. ANASTROZOLE [Concomitant]
     Dosage: UNK UKN, UNK
     Dates: start: 201001

REACTIONS (1)
  - Paraesthesia [Unknown]
